FAERS Safety Report 8817833 (Version 1)
Quarter: 2012Q4

REPORT INFORMATION
  Report Type: 
  Country: US (occurrence: US)
  Receive Date: 20121004
  Receipt Date: 20121004
  Transmission Date: 20130627
  Serious: Yes (Other)
  Sender: FDA-Public Use
  Company Number: US-ROCHE-791109

PATIENT
  Age: 23 None
  Sex: Female
  Weight: 54.48 kg

DRUGS (4)
  1. ACCUTANE [Suspect]
     Indication: ACNE
     Route: 065
     Dates: start: 199505, end: 199509
  2. ACCUTANE [Suspect]
     Route: 065
     Dates: start: 199809, end: 199903
  3. ACCUTANE [Suspect]
     Route: 065
     Dates: start: 200001, end: 200005
  4. ADDERALL [Concomitant]

REACTIONS (7)
  - Colitis ulcerative [Unknown]
  - Inflammatory bowel disease [Unknown]
  - Depression [Unknown]
  - Stress [Unknown]
  - Irritable bowel syndrome [Unknown]
  - Hepatic enzyme increased [Unknown]
  - Cholangitis sclerosing [Unknown]
